FAERS Safety Report 5168706-7 (Version None)
Quarter: 2006Q4

REPORT INFORMATION
  Report Type: 
  Country: None (occurrence: None)
  Receive Date: 20061206
  Receipt Date: 20061206
  Transmission Date: 20070319
  Serious: Yes (Other)
  Sender: FDA-Public Use
  Company Number: None

PATIENT
  Age: 65 Year
  Sex: Female
  Weight: 97.6 kg

DRUGS (1)
  1. ALENDRONATE SODIUM [Suspect]

REACTIONS (1)
  - PRURITUS [None]
